FAERS Safety Report 8320983-7 (Version None)
Quarter: 2012Q2

REPORT INFORMATION
  Report Type: 
  Country: None (occurrence: None)
  Receive Date: 20120430
  Receipt Date: 20120424
  Transmission Date: 20120825
  Serious: Yes (Other)
  Sender: FDA-Public Use
  Company Number: PHHY2012CA018113

PATIENT
  Sex: Female

DRUGS (1)
  1. ZOMETA [Suspect]
     Indication: BREAST CANCER
     Dosage: 4 MG, EVERY 4 WEEKS
     Route: 042
     Dates: start: 20120227

REACTIONS (9)
  - ARTHRALGIA [None]
  - PAIN [None]
  - BLOOD PRESSURE SYSTOLIC INCREASED [None]
  - URINE OUTPUT INCREASED [None]
  - SYNCOPE [None]
  - VISION BLURRED [None]
  - MYALGIA [None]
  - ARTHRITIS [None]
  - FATIGUE [None]
